FAERS Safety Report 10049021 (Version 1)
Quarter: 2014Q1

REPORT INFORMATION
  Report Type: Spontaneous
  Country: US (occurrence: US)
  Receive Date: 20140331
  Receipt Date: 20140331
  Transmission Date: 20141002
  Serious: Yes (Other)
  Sender: FDA-Public Use
  Company Number: US-ASTRAZENECA-2014SE20928

PATIENT
  Sex: Male

DRUGS (2)
  1. SEROQUEL XR [Suspect]
     Dosage: 50-150 MG  BEING CROSS TITRATED OFF
     Route: 048
  2. INVEGA [Concomitant]
     Route: 065

REACTIONS (1)
  - Neutropenia [Recovered/Resolved]
